FAERS Safety Report 18390752 (Version 1)
Quarter: 2020Q4

REPORT INFORMATION
  Report Type: Spontaneous
  Country: PT (occurrence: PT)
  Receive Date: 20201016
  Receipt Date: 20201016
  Transmission Date: 20210114
  Serious: Yes (Hospitalization, Other)
  Sender: FDA-Public Use
  Company Number: PT-AUROBINDO-AUR-APL-2017-28132

PATIENT
  Age: 79 Year
  Sex: Male

DRUGS (3)
  1. AMOXICILLIN. [Suspect]
     Active Substance: AMOXICILLIN
     Indication: STOMATITIS
     Dosage: 875 MILLIGRAM
     Route: 065
  2. AMOXICILLIN+CLAVULANIC ACID [Suspect]
     Active Substance: AMOXICILLIN\CLAVULANIC ACID
     Indication: STOMATITIS
     Dosage: UNK
     Route: 065
  3. CLAVULANIC ACID [Suspect]
     Active Substance: CLAVULANIC ACID
     Indication: STOMATITIS
     Dosage: 125 MILLIGRAM
     Route: 065

REACTIONS (2)
  - Meningitis aseptic [Recovering/Resolving]
  - Encephalitis [Recovering/Resolving]
